FAERS Safety Report 14330371 (Version 2)
Quarter: 2018Q3

REPORT INFORMATION
  Report Type: Report from Study
  Country: JP (occurrence: JP)
  Receive Date: 20171227
  Receipt Date: 20180808
  Transmission Date: 20181010
  Serious: Yes (Other)
  Sender: FDA-Public Use
  Company Number: JP-ALXN-A201604602AA

PATIENT
  Age: 16 Day
  Sex: Male
  Weight: 2.78 kg

DRUGS (1)
  1. STRENSIQ [Suspect]
     Active Substance: ASFOTASE ALFA
     Indication: HYPOPHOSPHATASIA
     Dosage: 2 MG/KG, TIW
     Route: 058
     Dates: start: 20160511

REACTIONS (4)
  - Hypocalcaemia [Recovered/Resolved]
  - Anaemia [Recovered/Resolved]
  - Platyspondylia [Not Recovered/Not Resolved]
  - Weight gain poor [Unknown]

NARRATIVE: CASE EVENT DATE: 20160527
